FAERS Safety Report 15270991 (Version 2)
Quarter: 2018Q4

REPORT INFORMATION
  Report Type: Spontaneous
  Country: US (occurrence: US)
  Receive Date: 20180813
  Receipt Date: 20181017
  Transmission Date: 20190204
  Serious: Yes (Other)
  Sender: FDA-Public Use
  Company Number: US-BAYER-2018-150610

PATIENT

DRUGS (1)
  1. GADOLINIUM IN UNSPECIFIED DRUG [Suspect]
     Active Substance: GADOLINIUM
     Dosage: UNK

REACTIONS (1)
  - Contrast media deposition [None]
